FAERS Safety Report 24810072 (Version 1)
Quarter: 2025Q1

REPORT INFORMATION
  Report Type: Spontaneous
  Country: US (occurrence: None)
  Receive Date: 20250104
  Receipt Date: 20250104
  Transmission Date: 20250409
  Serious: Yes (Hospitalization)
  Sender: FDA-CTU
  Company Number: None

PATIENT
  Age: 53 Year
  Sex: Female

DRUGS (2)
  1. WINREVAIR [Suspect]
     Active Substance: SOTATERCEPT-CSRK
     Indication: Pulmonary arterial hypertension
     Route: 058
     Dates: start: 202405
  2. UPTRAVI [Concomitant]
     Active Substance: SELEXIPAG

REACTIONS (6)
  - COVID-19 [None]
  - Dyspnoea [None]
  - Gastroenteritis viral [None]
  - Fatigue [None]
  - Dyspnoea exertional [None]
  - Oxygen consumption increased [None]

NARRATIVE: CASE EVENT DATE: 20241224
